FAERS Safety Report 5988164-X (Version None)
Quarter: 2008Q4

REPORT INFORMATION
  Report Type: 
  Country: None (occurrence: None)
  Receive Date: 20081203
  Receipt Date: 20081126
  Transmission Date: 20090506
  Serious: Yes (Other)
  Sender: FDA-Public Use
  Company Number: 2007SP023189

PATIENT
  Age: 64 Year
  Sex: Female
  Weight: 59 kg

DRUGS (6)
  1. PEG-INTRON [Suspect]
     Indication: HEPATITIS C
     Dosage: 80 MCG;QW;SC
     Route: 058
     Dates: start: 20050920, end: 20070130
  2. REBETOL [Suspect]
     Indication: HEPATITIS C
     Dosage: 400 MG;QD;PO
     Route: 048
     Dates: start: 20050920, end: 20070130
  3. KALLIKREIN [Concomitant]
  4. HYALEIN [Concomitant]
  5. KARY UNI [Concomitant]
  6. DIOVAN [Concomitant]

REACTIONS (3)
  - BASEDOW'S DISEASE [None]
  - ENDOCRINE OPHTHALMOPATHY [None]
  - HYPOTHYROIDISM [None]
